FAERS Safety Report 13055898 (Version 9)
Quarter: 2017Q4

REPORT INFORMATION
  Report Type: Spontaneous
  Country: US (occurrence: US)
  Receive Date: 20161222
  Receipt Date: 20171220
  Transmission Date: 20180320
  Serious: Yes (Hospitalization, Other)
  Sender: FDA-Public Use
  Company Number: US-PFIZER INC-2016581058

PATIENT
  Age: 76 Year
  Sex: Female
  Weight: 77.98 kg

DRUGS (6)
  1. IBRANCE [Suspect]
     Active Substance: PALBOCICLIB
     Indication: BREAST CANCER METASTATIC
     Dosage: 125 MG, CYCLIC (DAY 1 TO DAY 21, EVERY 28 DAYS)
     Route: 048
     Dates: start: 20161210
  2. IBRANCE [Suspect]
     Active Substance: PALBOCICLIB
     Dosage: UNK
  3. IBRANCE [Suspect]
     Active Substance: PALBOCICLIB
     Dosage: UNK
  4. IBRANCE [Suspect]
     Active Substance: PALBOCICLIB
     Dosage: UNK
  5. IBRANCE [Suspect]
     Active Substance: PALBOCICLIB
     Dosage: UNK
  6. IBRANCE [Suspect]
     Active Substance: PALBOCICLIB
     Dosage: UNK

REACTIONS (23)
  - Localised infection [Unknown]
  - Burning sensation [Unknown]
  - Peripheral swelling [Not Recovered/Not Resolved]
  - Myalgia [Not Recovered/Not Resolved]
  - Diabetes mellitus [Unknown]
  - Iron deficiency anaemia [Unknown]
  - Condition aggravated [Not Recovered/Not Resolved]
  - Sinus congestion [Unknown]
  - Oropharyngeal pain [Unknown]
  - Blood glucose decreased [Unknown]
  - Blood potassium decreased [Unknown]
  - Fatigue [Unknown]
  - Thrombosis [Unknown]
  - Eye haemorrhage [Unknown]
  - Blood iron decreased [Not Recovered/Not Resolved]
  - Hypersomnia [Unknown]
  - Dizziness [Unknown]
  - Drug dose omission [Unknown]
  - Cough [Unknown]
  - Pain in extremity [Unknown]
  - Fall [Not Recovered/Not Resolved]
  - Gait disturbance [Unknown]
  - Arthralgia [Not Recovered/Not Resolved]

NARRATIVE: CASE EVENT DATE: 20161228
